FAERS Safety Report 7864119-5 (Version None)
Quarter: 2011Q4

REPORT INFORMATION
  Report Type: 
  Country: None (occurrence: None)
  Receive Date: 20111028
  Receipt Date: 20111019
  Transmission Date: 20120403
  Serious: Yes (Hospitalization, Other)
  Sender: FDA-Public Use
  Company Number: US-US-EMD SERONO, INC.-7089660

PATIENT
  Sex: Female

DRUGS (2)
  1. REBIF [Suspect]
     Indication: MULTIPLE SCLEROSIS
     Dates: end: 20110401
  2. REBIF [Suspect]
     Route: 058
     Dates: start: 20111008

REACTIONS (3)
  - INFLUENZA LIKE ILLNESS [None]
  - KNEE OPERATION [None]
  - MULTIPLE SCLEROSIS RELAPSE [None]
